FAERS Safety Report 9197930 (Version 2)
Quarter: 2013Q2

REPORT INFORMATION
  Report Type: Spontaneous
  Country: AU (occurrence: AU)
  Receive Date: 20130328
  Receipt Date: 20130409
  Transmission Date: 20140414
  Serious: Yes (Hospitalization, Other)
  Sender: FDA-Public Use
  Company Number: AU-B.I. PHARMACEUTICALS,INC./RIDGEFIELD-2013-AU-00328AU

PATIENT
  Age: 92 Year
  Sex: Female
  Weight: 58 kg

DRUGS (2)
  1. PRADAXA [Suspect]
     Indication: ATRIAL FIBRILLATION
     Dosage: 220 MG
     Dates: end: 20130310
  2. CLOPIDOGREL [Concomitant]
     Dosage: 75 MG

REACTIONS (5)
  - Transient ischaemic attack [Recovered/Resolved]
  - Mesenteric artery embolism [Recovered/Resolved]
  - Dysphagia [Unknown]
  - Headache [Unknown]
  - Abdominal pain [Unknown]
